FAERS Safety Report 18384316 (Version 3)
Quarter: 2020Q4

REPORT INFORMATION
  Report Type: Spontaneous
  Country: JP (occurrence: JP)
  Receive Date: 20201015
  Receipt Date: 20201216
  Transmission Date: 20210114
  Serious: Yes (Death, Hospitalization, Other)
  Sender: FDA-Public Use
  Company Number: JP-009507513-2010JPN000396J

PATIENT
  Age: 74 Year
  Sex: Male
  Weight: 72 kg

DRUGS (17)
  1. SILODOSIN. [Concomitant]
     Active Substance: SILODOSIN
     Dosage: UNK
     Route: 065
  2. ALIMTA [Concomitant]
     Active Substance: PEMETREXED DISODIUM
     Indication: LUNG ADENOCARCINOMA STAGE IV
     Dosage: 500 MILLIGRAM/SQ. METER
     Route: 041
     Dates: start: 20191015, end: 20200929
  3. MECOBALAMIN [Concomitant]
     Active Substance: METHYLCOBALAMIN
     Dosage: 1000 MICROGRAM, QD
     Route: 030
     Dates: start: 20191008, end: 20201003
  4. BESACOLIN [Concomitant]
     Active Substance: BETHANECHOL CHLORIDE
     Dosage: UNK
     Route: 065
  5. GLYCYRON [Concomitant]
     Dosage: UNK
     Route: 065
  6. CERNILTON [Concomitant]
     Active Substance: HERBALS
     Dosage: UNK
     Route: 065
  7. OLMESARTAN MEDOXOMIL. [Concomitant]
     Active Substance: OLMESARTAN MEDOXOMIL
     Indication: HYPERTENSION
     Dosage: 10 GRAM, QD
     Route: 048
     Dates: start: 20191014, end: 20201003
  8. MAGMITT [Concomitant]
     Active Substance: MAGNESIUM OXIDE
     Indication: CONSTIPATION
     Dosage: 500 MILLIGRAM, QD
     Route: 048
     Dates: start: 20191014, end: 20201003
  9. KEYTRUDA [Suspect]
     Active Substance: PEMBROLIZUMAB
     Indication: LUNG ADENOCARCINOMA STAGE IV
     Dosage: 200 MILLIGRAM, Q3W
     Route: 041
     Dates: start: 20191015, end: 20200107
  10. KEYTRUDA [Suspect]
     Active Substance: PEMBROLIZUMAB
     Dosage: 200 MILLIGRAM/KILOGRAM, Q3W
     Route: 041
     Dates: start: 20200128, end: 20200929
  11. SODIUM RABEPRAZOLE [Concomitant]
     Active Substance: RABEPRAZOLE SODIUM
     Indication: GASTROOESOPHAGEAL REFLUX DISEASE
     Dosage: 1 GRAM, QD
     Route: 048
     Dates: start: 20191014, end: 20201003
  12. SPIRONOLACTONE. [Concomitant]
     Active Substance: SPIRONOLACTONE
     Indication: HYPERTENSION
     Dosage: 50 GRAM, BID
     Route: 048
     Dates: start: 20191014, end: 20201003
  13. PANVITAN [Concomitant]
     Active Substance: VITAMINS
     Dosage: 1 GRAM, QD
     Route: 048
     Dates: start: 20191007, end: 20201003
  14. AVOLVE [Concomitant]
     Active Substance: DUTASTERIDE
     Dosage: UNK
     Route: 065
  15. ALLOPURINOL. [Concomitant]
     Active Substance: ALLOPURINOL
     Indication: HYPERURICAEMIA
     Dosage: 100 GRAM, QD
     Route: 048
     Dates: start: 20191014, end: 20201003
  16. VESICARE [Concomitant]
     Active Substance: SOLIFENACIN SUCCINATE
     Dosage: UNK
     Route: 065
  17. HIBON [Concomitant]
     Active Substance: RIBOFLAVIN
     Indication: HYPERCHOLESTEROLAEMIA
     Dosage: 40 GRAM, BID
     Route: 048
     Dates: start: 20191014, end: 20201003

REACTIONS (1)
  - Immune-mediated enterocolitis [Fatal]

NARRATIVE: CASE EVENT DATE: 20201003
